FAERS Safety Report 9279290 (Version 1)
Quarter: 2013Q2

REPORT INFORMATION
  Report Type: Spontaneous
  Country: US (occurrence: US)
  Receive Date: 20130508
  Receipt Date: 20130508
  Transmission Date: 20140414
  Serious: Yes (Death, Other)
  Sender: FDA-Public Use
  Company Number: US-ROXANE LABORATORIES, INC.-2013-RO-00726RO

PATIENT
  Sex: Female

DRUGS (1)
  1. MORPHINE [Suspect]
     Route: 048

REACTIONS (2)
  - Death [Fatal]
  - Choking [Unknown]
